FAERS Safety Report 18436127 (Version 1)
Quarter: 2020Q4

REPORT INFORMATION
  Report Type: Spontaneous
  Country: US (occurrence: US)
  Receive Date: 20201028
  Receipt Date: 20201028
  Transmission Date: 20210114
  Serious: Yes (Other)
  Sender: FDA-Public Use
  Company Number: US-GLAXOSMITHKLINE-US2020211295

PATIENT

DRUGS (2)
  1. SENSODYNE RAPID RELIEF [Suspect]
     Active Substance: STANNOUS FLUORIDE
     Indication: PRODUCT USED FOR UNKNOWN INDICATION
     Dosage: UNK
  2. SENSODYNE REPAIR AND PROTECT [Suspect]
     Active Substance: STANNOUS FLUORIDE
     Indication: PRODUCT USED FOR UNKNOWN INDICATION
     Dosage: UNK

REACTIONS (4)
  - Oral discomfort [Recovered/Resolved]
  - Gingival swelling [Unknown]
  - Aphthous ulcer [Unknown]
  - Gingival discomfort [Unknown]
